FAERS Safety Report 10163000 (Version 2)
Quarter: 2014Q2

REPORT INFORMATION
  Report Type: Spontaneous
  Country: US (occurrence: US)
  Receive Date: 20140509
  Receipt Date: 20140612
  Transmission Date: 20141212
  Serious: No
  Sender: FDA-Public Use
  Company Number: US-B.I. PHARMACEUTICALS,INC./RIDGEFIELD-2014-BI-19600BP

PATIENT
  Sex: Male
  Weight: 56.7 kg

DRUGS (17)
  1. SPIRIVA [Suspect]
     Indication: CHRONIC OBSTRUCTIVE PULMONARY DISEASE
     Dosage: 18 MCG
     Route: 055
     Dates: end: 201404
  2. PREDNISONE [Concomitant]
     Dosage: 5 MG
     Route: 048
  3. PRAVASTATIN SODIUM [Concomitant]
     Dosage: 40 MG
     Route: 048
  4. GABAPENTIN [Concomitant]
     Dosage: 1200 MG
     Route: 048
  5. WARFARIN SODIUM [Concomitant]
     Dosage: 7.5 MG
     Route: 048
  6. BENICAR [Concomitant]
     Dosage: 40 MG
     Route: 048
  7. ALBUTEROL SULFATE [Concomitant]
     Dosage: 12 PUF
     Route: 055
  8. GLYBURIDE [Concomitant]
     Dosage: 5 MG
     Route: 048
  9. AVODART [Concomitant]
     Dosage: 0.5 MG
     Route: 048
  10. DALIRESP [Concomitant]
     Dosage: 250 MCG
     Route: 048
  11. ADVAIR DISKUS [Concomitant]
     Dosage: 2 PUF
     Route: 055
  12. FLOMAX [Concomitant]
     Dosage: 0.4 MG
     Route: 048
  13. CONTOUR TEST STRIPS [Concomitant]
     Dosage: DOSE PER APPLICATION- DX 250 AND DAILY DOSE: DX 500
     Route: 065
  14. NIFEDIPINE [Concomitant]
     Dosage: 90 MG
     Route: 048
  15. PROAIR HFA [Concomitant]
     Dosage: 12 PUF
     Route: 055
  16. NASONEX [Concomitant]
     Dosage: DOSE PER APPLICATION:50MCG/ACT 2 SPRAY IN EACH NOSTRIL
     Route: 055
  17. ALBUTEROL [Concomitant]
     Dosage: DOSE PER APPLICATION:0.083%
     Route: 055

REACTIONS (1)
  - Urinary retention [Recovered/Resolved]
